FAERS Safety Report 5800162-5 (Version None)
Quarter: 2008Q3

REPORT INFORMATION
  Report Type: 
  Country: None (occurrence: None)
  Receive Date: 20080703
  Receipt Date: 20080625
  Transmission Date: 20090109
  Serious: Yes (Hospitalization)
  Sender: FDA-Public Use
  Company Number: ES-AVENTIS-200816017GDDC

PATIENT
  Age: 34 Year
  Sex: Male

DRUGS (5)
  1. TELFAST                            /01314201/ [Suspect]
     Indication: RENAL COLIC
     Route: 048
     Dates: start: 20071128, end: 20071128
  2. AUGMENTINE PLUS [Suspect]
     Indication: RENAL COLIC
     Dosage: DOSE QUANTITY: 2
     Route: 048
     Dates: start: 20071128, end: 20071128
  3. NOLOTIL                            /00473101/ [Suspect]
     Indication: RENAL COLIC
     Route: 030
     Dates: start: 20071128, end: 20071128
  4. VALIUM [Suspect]
     Indication: RENAL COLIC
     Route: 030
     Dates: start: 20071128, end: 20071128
  5. LEVOTHROID [Concomitant]
     Indication: HYPOTHYROIDISM
     Route: 048
     Dates: start: 20070901

REACTIONS (2)
  - HEPATITIS ACUTE [None]
  - OFF LABEL USE [None]
